FAERS Safety Report 19137805 (Version 1)
Quarter: 2021Q2

REPORT INFORMATION
  Report Type: Report from Study
  Country: None (occurrence: NL)
  Receive Date: 20210415
  Receipt Date: 20210415
  Transmission Date: 20210717
  Serious: Yes (Death)
  Sender: FDA-Public Use
  Company Number: NL-ABBVIE-21K-114-3860103-00

PATIENT
  Sex: Female

DRUGS (6)
  1. DUODOPA [Suspect]
     Active Substance: CARBIDOPA\LEVODOPA
     Indication: PARKINSON^S DISEASE
     Route: 050
     Dates: start: 20180607
  2. DUODOPA [Suspect]
     Active Substance: CARBIDOPA\LEVODOPA
     Dosage: MD:12.0ML, CD: 4.9ML/H, ED: 2.5ML
     Route: 050
  3. DUODOPA [Suspect]
     Active Substance: CARBIDOPA\LEVODOPA
     Dosage: MD:12.0ML, CD: 5.0ML/H, ED: 2.5ML
     Route: 050
  4. MACROGOL [Concomitant]
     Active Substance: POLYETHYLENE GLYCOLS
     Indication: ABNORMAL FAECES
  5. SINEMET [Concomitant]
     Active Substance: CARBIDOPA\LEVODOPA
     Indication: PRODUCT USED FOR UNKNOWN INDICATION
  6. MOVICOLON [Concomitant]
     Active Substance: POLYETHYLENE GLYCOL 3350\POTASSIUM CHLORIDE\SODIUM BICARBONATE\SODIUM CHLORIDE
     Indication: ABNORMAL FAECES

REACTIONS (1)
  - Death [Fatal]

NARRATIVE: CASE EVENT DATE: 2021
